FAERS Safety Report 8095875-1 (Version None)
Quarter: 2011Q4

REPORT INFORMATION
  Report Type: 
  Country: None (occurrence: None)
  Receive Date: 20111222
  Receipt Date: 20111013
  Transmission Date: 20120403
  Serious: Yes (Hospitalization)
  Sender: FDA-Public Use
  Company Number: UTC-011251

PATIENT
  Age: 55 Year
  Sex: Female
  Weight: 177.2 kg

DRUGS (2)
  1. TRACLEER (BOSENTAN) (UNKNOWN) [Concomitant]
  2. TYVASO [Suspect]
     Indication: PULMONARY ARTERIAL HYPERTENSION
     Dosage: 18 - 54  MICROGRAMS (4 IN 1 D), INHALATION
     Route: 055
     Dates: start: 20100818

REACTIONS (5)
  - MEDICATION ERROR [None]
  - WALKING AID USER [None]
  - FATIGUE [None]
  - DIARRHOEA [None]
  - HYPERSOMNIA [None]
